FAERS Safety Report 25127605 (Version 1)
Quarter: 2025Q1

REPORT INFORMATION
  Report Type: Spontaneous
  Country: AU (occurrence: AU)
  Receive Date: 20250327
  Receipt Date: 20250327
  Transmission Date: 20250409
  Serious: No
  Sender: ALKEM
  Company Number: AU-ALKEM LABORATORIES LIMITED-AU-ALKEM-2024-05038

PATIENT
  Age: 12 Year
  Sex: Male

DRUGS (1)
  1. QUETIAPINE FUMARATE [Suspect]
     Active Substance: QUETIAPINE FUMARATE
     Indication: Product used for unknown indication
     Route: 065

REACTIONS (8)
  - Depressed mood [Unknown]
  - Mood swings [Unknown]
  - Physical assault [Unknown]
  - Psychotic disorder [Unknown]
  - Violence-related symptom [Unknown]
  - Irritability [Unknown]
  - Concomitant disease aggravated [Unknown]
  - Aggression [Unknown]
